FAERS Safety Report 9831447 (Version 1)
Quarter: 2014Q1

REPORT INFORMATION
  Report Type: Spontaneous
  Country: CH (occurrence: CH)
  Receive Date: 20140121
  Receipt Date: 20140121
  Transmission Date: 20141002
  Serious: Yes (Death, Hospitalization, Other)
  Sender: FDA-Public Use
  Company Number: PHHY2014CH004322

PATIENT
  Age: 65 Year
  Sex: Female
  Weight: 49.6 kg

DRUGS (19)
  1. GLIVEC [Suspect]
     Indication: SYSTEMIC SCLEROSIS
     Dosage: UNK UKN, UNK
     Dates: start: 200612
  2. GLIVEC [Suspect]
     Dosage: UNK UKN, UNK
     Dates: end: 2013
  3. STIVARGA [Suspect]
     Indication: GASTRIC CANCER
     Route: 048
     Dates: end: 20130918
  4. SUTENT [Suspect]
     Indication: GASTRIC CANCER
     Dosage: 50 MG, QD
     Route: 048
     Dates: end: 201203
  5. METOLAZON [Concomitant]
     Dosage: 5 MG, QD
     Route: 048
  6. LASIX [Concomitant]
     Dosage: 500 MG, QD
     Route: 048
  7. MARCOUMAR [Concomitant]
     Dosage: 3 MG, UNK
     Route: 048
  8. IMODIUM [Concomitant]
     Dosage: 2 MG, UNK
     Route: 048
  9. PANTOZOL [Concomitant]
     Dosage: 40 MG, Q12H
     Route: 048
  10. ROCALTROL [Concomitant]
     Dosage: 25 UG, QW3
     Route: 048
  11. ARANESP [Concomitant]
     Route: 058
  12. BECOZYM [Concomitant]
     Dosage: 1 DF, QD
     Route: 048
  13. CREON [Concomitant]
     Dosage: 40000 IU, 9QD
     Route: 048
  14. SMOFKABIVEN [Concomitant]
     Dosage: 1 DF, UNK
     Route: 041
  15. SUPRADYN                                /NET/ [Concomitant]
     Dosage: 1 DF, QD
     Route: 048
  16. BUSCOPAN [Concomitant]
     Dosage: 10 MG, UNK
  17. DUROGESIC [Concomitant]
     Dosage: 1 DF, (1 DF = 12 MCG/H)
     Route: 048
  18. ZOFRAN [Concomitant]
     Dosage: 4 MG, UNK
     Route: 060
  19. DAFALGAN [Concomitant]

REACTIONS (9)
  - Drug ineffective [Fatal]
  - Squamous cell carcinoma [Recovered/Resolved]
  - Bone marrow failure [Recovered/Resolved]
  - Abdominal pain [Not Recovered/Not Resolved]
  - Back pain [Not Recovered/Not Resolved]
  - Diarrhoea [Not Recovered/Not Resolved]
  - Vomiting [Not Recovered/Not Resolved]
  - Vertigo [Recovered/Resolved]
  - Nausea [Not Recovered/Not Resolved]
